FAERS Safety Report 7477560-X (Version None)
Quarter: 2011Q2

REPORT INFORMATION
  Report Type: 
  Country: None (occurrence: None)
  Receive Date: 20110513
  Receipt Date: 20110503
  Transmission Date: 20111010
  Serious: Yes (Death, Life-Threatening, Hospitalization)
  Sender: FDA-Public Use
  Company Number: DE-RANBAXY-2011RR-43680

PATIENT
  Age: 95 Year
  Sex: Female

DRUGS (14)
  1. BISOPROLOL FUMARATE [Concomitant]
     Indication: HYPERTENSION
     Dosage: 2.5 MG, BID
     Route: 048
     Dates: end: 20110225
  2. ENALAPRIL [Concomitant]
     Indication: HYPERTENSION
     Dosage: 20 MG, QD
     Route: 048
     Dates: end: 20110225
  3. TORSEMIDE [Concomitant]
     Indication: HYPERTENSION
     Dosage: 10 MG, BID
     Route: 048
     Dates: end: 20110225
  4. GLIMEPIRIDE [Concomitant]
     Indication: TYPE 2 DIABETES MELLITUS
     Dosage: 2 MG, QD
     Route: 048
     Dates: end: 20110225
  5. BERLOSIN [Concomitant]
     Indication: POLYARTHRITIS
     Dosage: 500 MG, TID
     Route: 048
     Dates: end: 20110225
  6. XIPAMIDE [Concomitant]
     Indication: HYPERTENSION
     Dosage: 20 MG, QD
     Route: 048
     Dates: end: 20110225
  7. AMLODIPINE BESYLATE [Concomitant]
     Indication: HYPERTENSION
     Dosage: 7.5 MG, BID
     Route: 048
     Dates: end: 20110225
  8. ASS 100 [Concomitant]
     Indication: TINNITUS
     Dosage: 100 MG, QD
     Route: 048
     Dates: end: 20110225
  9. CALCITRIOL [Concomitant]
     Indication: OSTEOPOROSIS
     Dosage: 0.25 MG, QD
     Route: 048
     Dates: end: 20110225
  10. CEFPODOXIME PROXETIL [Suspect]
     Indication: SKIN ULCER
     Dosage: 200 MG, BID
     Route: 048
     Dates: start: 20110218, end: 20110224
  11. PANTOPRAZOLE [Concomitant]
     Indication: PROPHYLAXIS AGAINST GASTROINTESTINAL ULCER
     Dosage: 20 MG, QD
     Route: 048
     Dates: end: 20110225
  12. FENTANYL [Concomitant]
     Indication: POLYARTHRITIS
     Dosage: 4.2 MG
     Route: 048
     Dates: end: 20110225
  13. BETAHISTINE [Concomitant]
     Indication: FALL
     Dosage: 12 MG, TID
     Route: 048
     Dates: end: 20110225
  14. LACTEOL [Concomitant]
     Dosage: 10000 MIU, BID
     Route: 048
     Dates: end: 20110225

REACTIONS (2)
  - CLOSTRIDIUM DIFFICILE COLITIS [None]
  - RENAL FAILURE ACUTE [None]
